FAERS Safety Report 8997865 (Version 1)
Quarter: 2013Q1

REPORT INFORMATION
  Report Type: Spontaneous
  Country: US (occurrence: US)
  Receive Date: 20130104
  Receipt Date: 20130104
  Transmission Date: 20140127
  Serious: No
  Sender: FDA-Public Use
  Company Number: US-BAYER-2013-000845

PATIENT
  Sex: Male

DRUGS (1)
  1. FINACEA [Suspect]
     Indication: CHLOASMA
     Dosage: UNK

REACTIONS (1)
  - Off label use [None]
